FAERS Safety Report 12782900 (Version 1)
Quarter: 2016Q3

REPORT INFORMATION
  Report Type: Report from Study
  Country: US (occurrence: US)
  Receive Date: 20160927
  Receipt Date: 20160927
  Transmission Date: 20161109
  Serious: Yes (Other)
  Sender: FDA-Public Use
  Company Number: US-ROCHE-1833840

PATIENT
  Age: 60 Year
  Sex: Female
  Weight: 58.8 kg

DRUGS (11)
  1. BEVACIZUMAB [Suspect]
     Active Substance: BEVACIZUMAB
     Dosage: CYCLE 4
     Route: 042
     Dates: start: 20110127
  2. IXABEPILONE [Suspect]
     Active Substance: IXABEPILONE
     Dosage: CYCLE 5
     Route: 042
     Dates: start: 20110309
  3. BEVACIZUMAB [Suspect]
     Active Substance: BEVACIZUMAB
     Dosage: CYCLE 5
     Route: 042
     Dates: start: 20110309
  4. IXABEPILONE [Suspect]
     Active Substance: IXABEPILONE
     Indication: PAPILLARY SEROUS ENDOMETRIAL CARCINOMA
     Dosage: CYCLE 1
     Route: 042
     Dates: start: 20101104
  5. IXABEPILONE [Suspect]
     Active Substance: IXABEPILONE
     Dosage: CYCLE 3
     Route: 042
     Dates: start: 20110106
  6. BEVACIZUMAB [Suspect]
     Active Substance: BEVACIZUMAB
     Indication: PAPILLARY SEROUS ENDOMETRIAL CARCINOMA
     Dosage: CYCLE 1
     Route: 042
     Dates: start: 20101104
  7. IXABEPILONE [Suspect]
     Active Substance: IXABEPILONE
     Dosage: CYCLE 2
     Route: 042
     Dates: start: 20101129
  8. BEVACIZUMAB [Suspect]
     Active Substance: BEVACIZUMAB
     Dosage: CYCLE 2
     Route: 042
     Dates: start: 20101129
  9. CARBOPLATIN. [Suspect]
     Active Substance: CARBOPLATIN
     Indication: PAPILLARY SEROUS ENDOMETRIAL CARCINOMA
     Route: 042
  10. IXABEPILONE [Suspect]
     Active Substance: IXABEPILONE
     Dosage: CYCLE 4
     Route: 042
     Dates: start: 20110127
  11. BEVACIZUMAB [Suspect]
     Active Substance: BEVACIZUMAB
     Dosage: CYCLE 3
     Route: 042
     Dates: start: 20110106

REACTIONS (6)
  - Neutrophil count decreased [Unknown]
  - Urinary anastomotic leak [Unknown]
  - Vaginal fistula [Unknown]
  - Platelet count decreased [Unknown]
  - White blood cell count decreased [Unknown]
  - Anaemia [Unknown]
